FAERS Safety Report 14785124 (Version 1)
Quarter: 2018Q2

REPORT INFORMATION
  Report Type: Spontaneous
  Country: US (occurrence: US)
  Receive Date: 20180420
  Receipt Date: 20180420
  Transmission Date: 20180711
  Serious: Yes (Other)
  Sender: FDA-Public Use
  Company Number: US-PFIZER INC-2018161395

PATIENT
  Age: 61 Year
  Sex: Male

DRUGS (1)
  1. BESPONSA [Suspect]
     Active Substance: INOTUZUMAB OZOGAMICIN
     Indication: LYMPHOCYTIC LEUKAEMIA
     Dosage: UNK
     Dates: start: 201711

REACTIONS (5)
  - Cerebrovascular accident [Unknown]
  - Cerebral infarction [Unknown]
  - Neoplasm progression [Unknown]
  - Splenic infarction [Unknown]
  - Subdural haemorrhage [Unknown]
